FAERS Safety Report 14850520 (Version 1)
Quarter: 2018Q2

REPORT INFORMATION
  Report Type: Report from Study
  Country: FR (occurrence: FR)
  Receive Date: 20180505
  Receipt Date: 20180505
  Transmission Date: 20180711
  Serious: Yes (Death, Life-Threatening, Hospitalization, Other)
  Sender: FDA-Public Use
  Company Number: FR-ACTELION-A-CH2018-170623

PATIENT
  Age: 70 Year
  Sex: Female
  Weight: 80 kg

DRUGS (11)
  1. MACITENTAN [Suspect]
     Active Substance: MACITENTAN
     Indication: PULMONARY ARTERIAL HYPERTENSION
     Dosage: 10 MG, OD
     Route: 048
     Dates: start: 201408, end: 20180330
  2. MACITENTAN [Suspect]
     Active Substance: MACITENTAN
     Indication: PULMONARY ARTERIAL HYPERTENSION
     Dosage: 10 MG, OD
     Route: 048
     Dates: start: 201408, end: 20180330
  3. LASILIX [Concomitant]
     Active Substance: FUROSEMIDE
     Dosage: 125 MG, UNK
     Dates: start: 201406
  4. PREVISCAN (PENTOXIFYLLINE) [Concomitant]
     Active Substance: PENTOXIFYLLINE
     Dosage: 20 MG, UNK
  5. DIFFU K [Concomitant]
     Active Substance: POTASSIUM CHLORIDE
     Dosage: 2400 MG, UNK
     Dates: start: 201108
  6. RAMIPRIL. [Concomitant]
     Active Substance: RAMIPRIL
     Dosage: 2.5 MG, UNK
     Dates: start: 20160617
  7. SERESTA [Concomitant]
     Active Substance: OXAZEPAM
     Dosage: 10 MG, UNK
     Dates: start: 20160607
  8. ADCIRCA [Concomitant]
     Active Substance: TADALAFIL
     Dosage: 40 MG, UNK
     Dates: start: 20150805
  9. BROMAZINE [Concomitant]
     Dosage: 25 MG, UNK
     Dates: start: 20171010
  10. SILICA [Concomitant]
     Active Substance: SILICON DIOXIDE
     Dosage: 900 MG, UNK
     Dates: start: 20130115
  11. BUSPIRONE [Concomitant]
     Active Substance: BUSPIRONE HYDROCHLORIDE
     Dosage: 15 MG, QD
     Dates: start: 20171009

REACTIONS (13)
  - Septic shock [Fatal]
  - Condition aggravated [Fatal]
  - Metabolic acidosis [Fatal]
  - Erythema [Unknown]
  - Anxiety [Fatal]
  - Haemoglobin decreased [Unknown]
  - Hepatorenal failure [Fatal]
  - Cardiopulmonary failure [Fatal]
  - Oedema peripheral [Unknown]
  - Pyrexia [Fatal]
  - Erysipelas [Unknown]
  - Hypotension [Fatal]
  - Dyspnoea [Fatal]

NARRATIVE: CASE EVENT DATE: 20180329
